FAERS Safety Report 20456782 (Version 4)
Quarter: 2022Q3

REPORT INFORMATION
  Report Type: Report from Study
  Country: CA (occurrence: CA)
  Receive Date: 20220210
  Receipt Date: 20220728
  Transmission Date: 20221027
  Serious: Yes (Hospitalization, Other)
  Sender: FDA-Public Use
  Company Number: CA-OTSUKA-2021_036816

PATIENT
  Age: 74 Year
  Sex: Male

DRUGS (1)
  1. CEDAZURIDINE\DECITABINE [Suspect]
     Active Substance: CEDAZURIDINE\DECITABINE
     Indication: Myelodysplastic syndrome
     Dosage: UNK
     Route: 065
     Dates: start: 20210728

REACTIONS (9)
  - Stent placement [Unknown]
  - Procedural complication [Unknown]
  - Blood product transfusion dependent [Unknown]
  - General physical health deterioration [Unknown]
  - Full blood count abnormal [Unknown]
  - Eastern Cooperative Oncology Group performance status worsened [Unknown]
  - Haemoglobin decreased [Unknown]
  - Therapeutic response unexpected [Unknown]
  - Therapy interrupted [Unknown]

NARRATIVE: CASE EVENT DATE: 20220215
